FAERS Safety Report 6733313-9 (Version None)
Quarter: 2010Q2

REPORT INFORMATION
  Report Type: 
  Country: None (occurrence: None)
  Receive Date: 20100520
  Receipt Date: 20100510
  Transmission Date: 20101027
  Serious: Yes (Other)
  Sender: FDA-Public Use
  Company Number: US-PFIZER INC-2010059480

PATIENT
  Sex: Female
  Weight: 55.782 kg

DRUGS (7)
  1. ZOLOFT [Suspect]
     Indication: DEPRESSION
     Dosage: 12.5 MG HALF TABLET DAILY
     Route: 048
     Dates: start: 20091201
  2. ZOLOFT [Suspect]
     Dosage: 25 MG DAILY
     Route: 048
  3. ZOLOFT [Suspect]
     Dosage: 50 MG DAILY
     Route: 048
  4. ZOLOFT [Suspect]
     Dosage: 100 MG DAILY
     Route: 048
     Dates: end: 20100201
  5. CYMBALTA [Suspect]
     Indication: DEPRESSION
     Dosage: UNK
     Route: 048
     Dates: start: 20100201, end: 20100401
  6. XANAX [Concomitant]
     Indication: ANXIETY
     Dosage: 0.5 MG, 2X/DAY
     Route: 048
     Dates: start: 20090101
  7. XANAX [Concomitant]
     Indication: SLEEP DISORDER

REACTIONS (7)
  - ABNORMAL BEHAVIOUR [None]
  - AGGRESSION [None]
  - ANGER [None]
  - DECREASED APPETITE [None]
  - EMOTIONAL DISORDER [None]
  - LOSS OF LIBIDO [None]
  - WEIGHT DECREASED [None]
